FAERS Safety Report 8025536-6 (Version None)
Quarter: 2012Q1

REPORT INFORMATION
  Report Type: 
  Country: None (occurrence: None)
  Receive Date: 20120105
  Receipt Date: 20111229
  Transmission Date: 20120608
  Serious: Yes (Other)
  Sender: FDA-Public Use
  Company Number: US-BRISTOL-MYERS SQUIBB COMPANY-16326365

PATIENT
  Age: 82 Year
  Sex: Male
  Weight: 72 kg

DRUGS (5)
  1. MULTAQ [Concomitant]
  2. AVAPRO [Suspect]
     Indication: HYPERTENSION
     Dosage: STOPPED IN JAN2011(9 MONTHS) RESTARTED 75MG:QD:2 WKS
     Route: 048
  3. WARFARIN SODIUM [Concomitant]
  4. TAMSULOSIN HCL [Concomitant]
  5. HYDROCHLOROTHIAZIDE [Concomitant]

REACTIONS (2)
  - ATRIAL FIBRILLATION [None]
  - HYPOTENSION [None]
